FAERS Safety Report 4712170-6 (Version None)
Quarter: 2005Q3

REPORT INFORMATION
  Report Type: 
  Country: None (occurrence: None)
  Receive Date: 20050712
  Receipt Date: 20050701
  Transmission Date: 20060218
  Serious: Yes (Hospitalization)
  Sender: FDA-Public Use
  Company Number: CH-ROCHE-409528

PATIENT
  Age: 65 Year
  Sex: Male

DRUGS (10)
  1. TORSEMIDE [Suspect]
     Indication: DRUG USE FOR UNKNOWN INDICATION
     Route: 048
     Dates: start: 20050515, end: 20050605
  2. ZESTRIL [Suspect]
     Indication: DRUG USE FOR UNKNOWN INDICATION
     Route: 048
     Dates: start: 20050515, end: 20050605
  3. IPRATROPIUM BROMIDE/SALBUTAMOL SULFATE [Concomitant]
     Dosage: TRADE NAME: DOSPIR
     Route: 055
     Dates: start: 20050515
  4. SPIRIVA [Concomitant]
     Route: 055
     Dates: start: 20050515
  5. ATARAX [Concomitant]
     Route: 048
     Dates: start: 20050515
  6. TRAMADOL HCL [Concomitant]
     Route: 048
     Dates: start: 20050515
  7. SINTROM [Concomitant]
     Dosage: LONG TERM.
     Route: 048
  8. LEXOTANIL [Concomitant]
     Dosage: LONG TERM.
     Route: 048
  9. DAFALGAN [Concomitant]
     Dosage: LONG TERM.
     Route: 048
  10. PREDNISONE TAB [Concomitant]
     Dosage: STARTED DURING REHABILITATION APPROXIMATELY 2 WEEKS PRIOR TO THE EVENTS.  INCREASED TO 80 MG PER DA+
     Dates: start: 20050515

REACTIONS (2)
  - ARTHRALGIA [None]
  - LEUKOCYTOCLASTIC VASCULITIS [None]
